FAERS Safety Report 5136019-5 (Version None)
Quarter: 2006Q4

REPORT INFORMATION
  Report Type: 
  Country: None (occurrence: None)
  Receive Date: 20061020
  Receipt Date: 20060921
  Transmission Date: 20070319
  Serious: Yes (Death, Hospitalization)
  Sender: FDA-Public Use
  Company Number: 2006SP003807

PATIENT
  Age: 10 Year
  Sex: Female

DRUGS (10)
  1. POSACONAZOLE [Suspect]
     Indication: FUNGAL INFECTION
     Dosage: 200 MG; QID; PO
     Route: 048
     Dates: start: 20040701
  2. METHYLPREDNISOLONE 4MG TAB [Concomitant]
  3. CYCLOSPORINE [Concomitant]
  4. ATGAM [Concomitant]
  5. FLUCONAZOLE [Concomitant]
  6. TRIMETHOPRIM + SULFAMETHOXAZOLE [Concomitant]
  7. AMPHOTERICIN B [Concomitant]
  8. VORICONAZOLE [Concomitant]
  9. CASPOFUNGIN [Concomitant]
  10. GRANULOCYTE [Concomitant]

REACTIONS (4)
  - ADENOVIRUS INFECTION [None]
  - MULTI-ORGAN FAILURE [None]
  - STEM CELL TRANSPLANT [None]
  - TRANSPLANT REJECTION [None]
